FAERS Safety Report 12659286 (Version 2)
Quarter: 2019Q2

REPORT INFORMATION
  Report Type: Other
  Country: CA (occurrence: CA)
  Receive Date: 20160817
  Receipt Date: 20190415
  Transmission Date: 20190711
  Serious: Yes (Other)
  Sender: FDA-Public Use
  Company Number: CA-VALIDUS PHARMACEUTICALS LLC-CA-2016VAL002441

PATIENT

DRUGS (5)
  1. CODEINE [Suspect]
     Active Substance: CODEINE
     Indication: HEADACHE
     Dosage: UNK
     Route: 065
  2. BUPRENORPHINE. [Suspect]
     Active Substance: BUPRENORPHINE
     Indication: HEADACHE
     Dosage: 5 ?G/H
     Route: 062
     Dates: start: 2013
  3. BUPRENORPHINE. [Suspect]
     Active Substance: BUPRENORPHINE
     Dosage: 15 ?G/H  (ONE PATCH 5 MCG EVERY HOUR AND ONE 10 MCG/ HOUR)
     Route: 062
     Dates: start: 2013
  4. MORPHINE SULFATE. [Suspect]
     Active Substance: MORPHINE SULFATE
     Indication: HEADACHE
     Dosage: 25 MG, UNK
     Route: 065
  5. DEMEROL [Suspect]
     Active Substance: MEPERIDINE HYDROCHLORIDE
     Indication: HEADACHE
     Dosage: UNK
     Route: 065

REACTIONS (8)
  - Drug ineffective [Unknown]
  - Accidental overdose [Unknown]
  - Asthenia [Unknown]
  - Drug abuse [Unknown]
  - Intentional product misuse [Unknown]
  - Dyspnoea [Unknown]
  - Mobility decreased [Unknown]
  - Euphoric mood [Unknown]

NARRATIVE: CASE EVENT DATE: 2013
